FAERS Safety Report 13795737 (Version 2)
Quarter: 2017Q3

REPORT INFORMATION
  Report Type: Spontaneous
  Country: US (occurrence: US)
  Receive Date: 20170726
  Receipt Date: 20170727
  Transmission Date: 20171127
  Serious: Yes (Death, Other)
  Sender: FDA-Public Use
  Company Number: PHHY2017US108507

PATIENT
  Age: 17 Year
  Sex: Male

DRUGS (7)
  1. IMMUNOGLOBULIN (IVIG) [Suspect]
     Active Substance: HUMAN IMMUNOGLOBULIN G
     Dosage: ADDITIONAL
     Route: 042
  2. MINOCYCLINE [Suspect]
     Active Substance: MINOCYCLINE\MINOCYCLINE HYDROCHLORIDE
     Indication: FOLLICULITIS
     Route: 065
  3. IMMUNOGLOBULIN (IVIG) [Suspect]
     Active Substance: HUMAN IMMUNOGLOBULIN G
     Indication: PRODUCT USED FOR UNKNOWN INDICATION
     Dosage: 2 G/KG, UNK
     Route: 042
  4. PREDNISONE. [Suspect]
     Active Substance: PREDNISONE
     Indication: DERMATITIS EXFOLIATIVE
     Dosage: 1 MG/KG, QD
     Route: 065
  5. RITUXIMAB. [Suspect]
     Active Substance: RITUXIMAB
     Indication: PRODUCT USED FOR UNKNOWN INDICATION
     Dosage: 1 G GIVEN 14 DAYS APART
     Route: 065
  6. PREDNISONE. [Suspect]
     Active Substance: PREDNISONE
     Dosage: 2 MG/KG, QD
     Route: 065
  7. METHYLPREDNISOLONE. [Suspect]
     Active Substance: METHYLPREDNISOLONE
     Indication: PRODUCT USED FOR UNKNOWN INDICATION
     Route: 065

REACTIONS (27)
  - Autoimmune thyroiditis [Fatal]
  - Dermatitis bullous [Fatal]
  - Interstitial lung disease [Fatal]
  - Gastrointestinal haemorrhage [Unknown]
  - Dermatitis exfoliative [Fatal]
  - Hilar lymphadenopathy [Fatal]
  - Lymphadenopathy mediastinal [Fatal]
  - Eosinophilia [Fatal]
  - Lymphadenopathy [Fatal]
  - Transaminases increased [Fatal]
  - Blister [Fatal]
  - Rash pruritic [Fatal]
  - Face oedema [Fatal]
  - Leukocytosis [Fatal]
  - Condition aggravated [Unknown]
  - Drug reaction with eosinophilia and systemic symptoms [Fatal]
  - Pemphigoid [Fatal]
  - Dermatitis [Fatal]
  - Thrombocytopenia [Unknown]
  - Renal failure [Unknown]
  - Type 1 diabetes mellitus [Fatal]
  - Injury [Fatal]
  - Rebound effect [Unknown]
  - Septic shock [Unknown]
  - Acute kidney injury [Fatal]
  - Rash [Fatal]
  - Arterial thrombosis [Unknown]
